FAERS Safety Report 12766578 (Version 1)
Quarter: 2016Q3

REPORT INFORMATION
  Report Type: Spontaneous
  Country: NO (occurrence: NO)
  Receive Date: 20160921
  Receipt Date: 20160921
  Transmission Date: 20161109
  Serious: Yes (Other)
  Sender: FDA-Public Use
  Company Number: NO-BRISTOL-MYERS SQUIBB COMPANY-BMS-2016-075935

PATIENT
  Sex: Female

DRUGS (1)
  1. OPDIVO [Suspect]
     Active Substance: NIVOLUMAB
     Indication: FEMALE REPRODUCTIVE NEOPLASM
     Dosage: UNK
     Route: 065
     Dates: end: 20160805

REACTIONS (4)
  - Off label use [Unknown]
  - Anaemia [Unknown]
  - Thrombocytopenia [Unknown]
  - Hypercalcaemia [Unknown]
